FAERS Safety Report 4420148-5 (Version None)
Quarter: 2004Q3

REPORT INFORMATION
  Report Type: 
  Country: None (occurrence: None)
  Receive Date: 20040809
  Receipt Date: 20040324
  Transmission Date: 20050211
  Serious: No
  Sender: FDA-Public Use
  Company Number: US-GLAXOSMITHKLINE-A0504280A

PATIENT
  Sex: Female

DRUGS (3)
  1. PAXIL [Suspect]
     Indication: ANXIETY
  2. LANTUS [Concomitant]
     Indication: DRUG USE FOR UNKNOWN INDICATION
  3. INSULIN [Concomitant]

REACTIONS (1)
  - WEIGHT INCREASED [None]
